FAERS Safety Report 17939935 (Version 7)
Quarter: 2022Q2

REPORT INFORMATION
  Report Type: Report from Study
  Country: US (occurrence: US)
  Receive Date: 20200624
  Receipt Date: 20220512
  Transmission Date: 20220721
  Serious: Yes (Other)
  Sender: FDA-Public Use
  Company Number: US-SHIRE-US202020586

PATIENT
  Sex: Female
  Weight: 113 kg

DRUGS (26)
  1. HUMAN IMMUNOGLOBULIN G [Suspect]
     Active Substance: HUMAN IMMUNOGLOBULIN G
     Indication: Chronic inflammatory demyelinating polyradiculoneuropathy
     Dosage: 40 GRAM, Q4WEEKS
     Route: 042
     Dates: start: 20180615
  2. HUMAN IMMUNOGLOBULIN G [Suspect]
     Active Substance: HUMAN IMMUNOGLOBULIN G
     Dosage: 40 GRAM
     Route: 042
     Dates: start: 20180615
  3. METOPROLOL [Suspect]
     Active Substance: METOPROLOL
     Indication: Product used for unknown indication
     Dosage: UNK
     Route: 065
  4. ACETAMINOPHEN [Concomitant]
     Active Substance: ACETAMINOPHEN
     Indication: Product used for unknown indication
  5. DIPHENHYDRAMINE [Concomitant]
     Active Substance: DIPHENHYDRAMINE
     Indication: Product used for unknown indication
  6. HEPARIN [Concomitant]
     Active Substance: HEPARIN SODIUM
     Indication: Product used for unknown indication
  7. LIDOCAINE [Concomitant]
     Active Substance: LIDOCAINE
     Indication: Product used for unknown indication
  8. SODIUM CHLORIDE [Concomitant]
     Active Substance: SODIUM CHLORIDE
     Indication: Product used for unknown indication
  9. SODIUM CHLORIDE [Concomitant]
     Active Substance: SODIUM CHLORIDE
     Indication: Product used for unknown indication
  10. ONDANSETRON [Concomitant]
     Active Substance: ONDANSETRON
     Indication: Product used for unknown indication
  11. EPINEPHRINE [Concomitant]
     Active Substance: EPINEPHRINE
     Indication: Product used for unknown indication
  12. METFORMIN [Concomitant]
     Active Substance: METFORMIN HYDROCHLORIDE
  13. CARDIZEM [Concomitant]
     Active Substance: DILTIAZEM HYDROCHLORIDE
  14. VITAMIN D3 [Concomitant]
     Active Substance: CHOLECALCIFEROL
  15. PEPCID [Concomitant]
     Active Substance: FAMOTIDINE
  16. PREVACID [Concomitant]
     Active Substance: LANSOPRAZOLE
  17. ZINC [Concomitant]
     Active Substance: ZINC
  18. NEURONTIN [Concomitant]
     Active Substance: GABAPENTIN
  19. CRANBERRY [Concomitant]
     Active Substance: CRANBERRY
  20. ASPIRIN [Concomitant]
     Active Substance: ASPIRIN
  21. LOSARTAN [Concomitant]
     Active Substance: LOSARTAN
  22. POTASSIUM [Concomitant]
     Active Substance: POTASSIUM
  23. VITAMIN C [Concomitant]
     Active Substance: ASCORBIC ACID
  24. ALBUTEROL SULFATE [Concomitant]
     Active Substance: ALBUTEROL SULFATE
  25. MOBIC [Concomitant]
     Active Substance: MELOXICAM
  26. PYRIDOSTIGMINE BROMIDE [Concomitant]
     Active Substance: PYRIDOSTIGMINE BROMIDE

REACTIONS (10)
  - COVID-19 pneumonia [Unknown]
  - Urinary tract infection [Unknown]
  - Flank pain [Unknown]
  - Anxiety [Unknown]
  - Chest discomfort [Unknown]
  - Drug hypersensitivity [Unknown]
  - Nausea [Unknown]
  - Rash vesicular [Unknown]
  - Infusion related reaction [Unknown]
  - Off label use [Unknown]
